FAERS Safety Report 7389178-8 (Version None)
Quarter: 2011Q1

REPORT INFORMATION
  Report Type: 
  Country: None (occurrence: None)
  Receive Date: 20110329
  Receipt Date: 20110329
  Transmission Date: 20110831
  Serious: Yes (Hospitalization)
  Sender: FDA-Public Use
  Company Number: None

PATIENT
  Sex: Female
  Weight: 49.8957 kg

DRUGS (1)
  1. LIALDA [Suspect]
     Indication: IRRITABLE BOWEL SYNDROME
     Dosage: 2 TABLETS EVERY DAY ORAL
     Route: 048
     Dates: start: 20101015

REACTIONS (5)
  - ARTHRALGIA [None]
  - EAR PAIN [None]
  - PYREXIA [None]
  - MUSCLE SPASMS [None]
  - CHILLS [None]
